FAERS Safety Report 22598874 (Version 1)
Quarter: 2023Q2

REPORT INFORMATION
  Report Type: Spontaneous
  Country: FR (occurrence: FR)
  Receive Date: 20230614
  Receipt Date: 20230614
  Transmission Date: 20230722
  Serious: Yes (Life-Threatening, Hospitalization)
  Sender: FDA-Public Use
  Company Number: None

PATIENT
  Age: 27 Year

DRUGS (3)
  1. CLONAZEPAM [Suspect]
     Active Substance: CLONAZEPAM
  2. LYRICA [Suspect]
     Active Substance: PREGABALIN
  3. COCAINE [Suspect]
     Active Substance: COCAINE

REACTIONS (6)
  - Toxicity to various agents [Recovering/Resolving]
  - Coma [Recovered/Resolved]
  - Confusional state [Recovering/Resolving]
  - Mydriasis [Unknown]
  - Agitation [Recovering/Resolving]
  - Bradyphrenia [Unknown]
